FAERS Safety Report 20082126 (Version 1)
Quarter: 2021Q4

REPORT INFORMATION
  Report Type: Spontaneous
  Country: DE (occurrence: DE)
  Receive Date: 20211117
  Receipt Date: 20211117
  Transmission Date: 20220303
  Serious: Yes (Hospitalization, Other)
  Sender: FDA-Public Use
  Company Number: DE-ABBVIE-21K-062-4163682-00

PATIENT
  Age: 9 Year
  Sex: Male
  Weight: 41 kg

DRUGS (3)
  1. VALPROATE SODIUM [Suspect]
     Active Substance: VALPROATE SODIUM
     Indication: Product used for unknown indication
     Route: 048
     Dates: start: 201903, end: 20190514
  2. BRIVIACT [Concomitant]
     Active Substance: BRIVARACETAM
     Indication: Partial seizures
     Dates: start: 201901, end: 20190514
  3. LACOSAMIDE [Concomitant]
     Active Substance: LACOSAMIDE
     Indication: Product used for unknown indication

REACTIONS (6)
  - Restlessness [Recovered/Resolved]
  - Sleep disorder [Recovered/Resolved]
  - Personality change [Recovered/Resolved]
  - Partial seizures [Recovered/Resolved]
  - Aggression [Recovered/Resolved]
  - Agitation [Recovered/Resolved]

NARRATIVE: CASE EVENT DATE: 20190507
